FAERS Safety Report 5895754-1 (Version None)
Quarter: 2008Q3

REPORT INFORMATION
  Report Type: 
  Country: None (occurrence: None)
  Receive Date: 20080924
  Receipt Date: 20080707
  Transmission Date: 20090109
  Serious: No
  Sender: FDA-Public Use
  Company Number: US-BAYER-200828382NA

PATIENT
  Age: 54 Year
  Sex: Female

DRUGS (2)
  1. CLIMARA PRO [Suspect]
     Indication: HOT FLUSH
     Route: 062
  2. CLIMARA PRO [Suspect]
     Route: 062

REACTIONS (3)
  - HEART RATE INCREASED [None]
  - HOT FLUSH [None]
  - PALPITATIONS [None]
